FAERS Safety Report 13986532 (Version 2)
Quarter: 2017Q3

REPORT INFORMATION
  Report Type: Spontaneous
  Country: GB (occurrence: GB)
  Receive Date: 20170919
  Receipt Date: 20170925
  Transmission Date: 20171128
  Serious: Yes (Other)
  Sender: FDA-Public Use
  Company Number: GB-RECKITT BENCKISER HEALTHCARE INT LIMITED-RB-94658-2017

PATIENT
  Sex: Female

DRUGS (1)
  1. UNSPECIFIED DETTOL [Suspect]
     Active Substance: CHLOROXYLENOL\TRICLOSAN
     Indication: PRODUCT USED FOR UNKNOWN INDICATION
     Dosage: UNK
     Route: 065

REACTIONS (4)
  - Wrong technique in product usage process [Unknown]
  - Screaming [Unknown]
  - Chest pain [Unknown]
  - Exposure to toxic agent [Unknown]
